FAERS Safety Report 17208481 (Version 1)
Quarter: 2019Q4

REPORT INFORMATION
  Report Type: Spontaneous
  Country: CA (occurrence: CA)
  Receive Date: 20191227
  Receipt Date: 20191227
  Transmission Date: 20200122
  Serious: Yes (Death, Other)
  Sender: FDA-Public Use
  Company Number: CA-GLAXOSMITHKLINE-CA2019AMR235011

PATIENT
  Age: 47 Year
  Sex: Male

DRUGS (9)
  1. OMALIZUMAB. [Suspect]
     Active Substance: OMALIZUMAB
     Indication: ASTHMA
     Dosage: 375 MG (1 EVERY 2 WEEKS)
     Route: 058
  2. VENTOLIN [Concomitant]
     Active Substance: ALBUTEROL SULFATE
     Indication: ASTHMA
     Dosage: 1 DF
     Route: 055
  3. NUCALA [Suspect]
     Active Substance: MEPOLIZUMAB
     Indication: PRODUCT USED FOR UNKNOWN INDICATION
     Dosage: UNK
  4. IBUPROFEN. [Concomitant]
     Active Substance: IBUPROFEN
     Indication: PAIN
     Dosage: 1 DF, BID
     Route: 048
  5. OMALIZUMAB. [Suspect]
     Active Substance: OMALIZUMAB
     Dosage: 225 MG (1 EVERY 2 WEEKS)
     Route: 058
  6. SPIRIVA [Concomitant]
     Active Substance: TIOTROPIUM BROMIDE MONOHYDRATE
     Indication: ASTHMA
     Dosage: 1 DF, BID
     Route: 055
  7. ZENHALE [Concomitant]
     Active Substance: FORMOTEROL FUMARATE\MOMETASONE FUROATE
     Indication: ASTHMA
     Dosage: 3 DF, BID
     Route: 055
  8. SINGULAIR [Suspect]
     Active Substance: MONTELUKAST SODIUM
     Indication: PRODUCT USED FOR UNKNOWN INDICATION
     Dosage: 10 MG, QD
  9. PANTOPRAZOLE MAGNESIUM [Concomitant]
     Active Substance: PANTOPRAZOLE MAGNESIUM
     Indication: GASTROOESOPHAGEAL REFLUX DISEASE
     Dosage: 1 DF, BID
     Route: 048

REACTIONS (21)
  - Nasal septum deviation [Fatal]
  - Weight increased [Fatal]
  - Chest discomfort [Fatal]
  - Dyspnoea [Fatal]
  - Vertigo [Fatal]
  - Asthma [Fatal]
  - Malaise [Fatal]
  - Nasopharyngitis [Fatal]
  - Sinus congestion [Fatal]
  - Weight decreased [Fatal]
  - Lower respiratory tract infection [Fatal]
  - Gastrooesophageal reflux disease [Fatal]
  - Insomnia [Fatal]
  - Quality of life decreased [Fatal]
  - Rash pruritic [Fatal]
  - Smoke sensitivity [Fatal]
  - Fatigue [Fatal]
  - Forced expiratory volume decreased [Fatal]
  - Mean cell haemoglobin increased [Fatal]
  - Procedural pain [Fatal]
  - Respiratory tract infection [Fatal]
